FAERS Safety Report 23975372 (Version 1)
Quarter: 2024Q2

REPORT INFORMATION
  Report Type: Spontaneous
  Country: US (occurrence: US)
  Receive Date: 20240614
  Receipt Date: 20240614
  Transmission Date: 20240715
  Serious: No
  Sender: FDA-Public Use
  Company Number: US-HALEON-2181343

PATIENT
  Age: 76 Year
  Sex: Female
  Weight: 104.33 kg

DRUGS (2)
  1. HYDROCORTISONE [Suspect]
     Active Substance: HYDROCORTISONE\HYDROCORTISONE ACETATE
     Indication: Coccidioidomycosis
  2. VORICONAZOLE [Suspect]
     Active Substance: VORICONAZOLE
     Indication: Coccidioidomycosis
     Dosage: 200 MILLIGRAM, ORAL, ONCE A DAY
     Route: 048
     Dates: start: 20240529

REACTIONS (4)
  - Pruritus [Unknown]
  - Fatigue [Unknown]
  - Drug ineffective [Unknown]
  - Oral mucosal exfoliation [Unknown]
